FAERS Safety Report 23459406 (Version 2)
Quarter: 2024Q1

REPORT INFORMATION
  Report Type: Spontaneous
  Country: US (occurrence: US)
  Receive Date: 20240131
  Receipt Date: 20240202
  Transmission Date: 20240410
  Serious: Yes (Hospitalization, Other)
  Sender: FDA-Public Use
  Company Number: US-NOVOPROD-1167969

PATIENT
  Age: 56 Year
  Sex: Male

DRUGS (1)
  1. TRESIBA [Suspect]
     Active Substance: INSULIN DEGLUDEC
     Indication: Type 1 diabetes mellitus
     Dosage: UNK
     Route: 058
     Dates: start: 2014

REACTIONS (2)
  - Coronary artery occlusion [Recovered/Resolved]
  - Pancreatic failure [Not Recovered/Not Resolved]

NARRATIVE: CASE EVENT DATE: 20150101
